FAERS Safety Report 9380035 (Version 1)
Quarter: 2013Q2

REPORT INFORMATION
  Report Type: Spontaneous
  Country: IN (occurrence: None)
  Receive Date: 20130628
  Receipt Date: 20130628
  Transmission Date: 20140414
  Serious: Yes (Other)
  Sender: FDA-Public Use
  Company Number: AUR-APL-2013-05347

PATIENT
  Age: 65 Year
  Sex: Female

DRUGS (4)
  1. CLOPIDOGREL (CLOPIDOGREL) [Suspect]
     Indication: PRODUCT USED FOR UNKNOWN INDICATION
  2. FUROSEMIDE (FUROSEMIDE) [Suspect]
     Indication: PRODUCT USED FOR UNKNOWN INDICATION
     Dosage: 80 MG (40 MG, 2 IN 1 D)
  3. AMLODIPINE (AMLODIPINE) [Suspect]
     Indication: PRODUCT USED FOR UNKNOWN INDICATION
  4. ATORVASTATIN CALCIUM (ATORVASTATIN CALCIUM) [Suspect]
     Indication: PRODUCT USED FOR UNKNOWN INDICATION

REACTIONS (11)
  - Drug interaction [None]
  - Renal failure acute [None]
  - Blood pressure systolic increased [None]
  - Haemodialysis [None]
  - Rhabdomyolysis [None]
  - Hypothyroidism [None]
  - Haemoglobin decreased [None]
  - White blood cell count increased [None]
  - Electrocardiogram T wave peaked [None]
  - Electrocardiogram T wave abnormal [None]
  - Hypokalaemia [None]
